FAERS Safety Report 20852201 (Version 11)
Quarter: 2022Q4

REPORT INFORMATION
  Report Type: Report from Study
  Country: US (occurrence: US)
  Receive Date: 20220520
  Receipt Date: 20221013
  Transmission Date: 20230113
  Serious: Yes (Hospitalization)
  Sender: FDA-Public Use
  Company Number: NVSC2022US115227

PATIENT
  Sex: Male
  Weight: 126.09 kg

DRUGS (5)
  1. TREPROSTINIL [Suspect]
     Active Substance: TREPROSTINIL
     Indication: Pulmonary arterial hypertension
     Dosage: 24.5 NG/KG/MIN, CONT
     Route: 058
     Dates: start: 20210715
  2. TREPROSTINIL [Suspect]
     Active Substance: TREPROSTINIL
     Dosage: 24.5 NG/KG/MIN, CONT, RESTARTED
     Route: 058
  3. TREPROSTINIL [Suspect]
     Active Substance: TREPROSTINIL
     Dosage: 24.5 NG/KG/MIN, CONT
     Route: 058
     Dates: end: 20220510
  4. SILDENAFIL CITRATE [Concomitant]
     Active Substance: SILDENAFIL CITRATE
     Indication: Product used for unknown indication
     Dosage: UNK
     Route: 065
  5. XARELTO [Concomitant]
     Active Substance: RIVAROXABAN
     Indication: Product used for unknown indication
     Dosage: UNK
     Route: 065

REACTIONS (9)
  - Unresponsive to stimuli [Unknown]
  - COVID-19 [Unknown]
  - Renal disorder [Unknown]
  - Laboratory test abnormal [Unknown]
  - Memory impairment [Unknown]
  - Fluid retention [Unknown]
  - Catheter site haemorrhage [Unknown]
  - Dyspnoea [Unknown]
  - Device issue [Unknown]
